FAERS Safety Report 14510406 (Version 1)
Quarter: 2018Q1

REPORT INFORMATION
  Report Type: Spontaneous
  Country: RU (occurrence: RU)
  Receive Date: 20180209
  Receipt Date: 20180209
  Transmission Date: 20180509
  Serious: Yes (Hospitalization, Other)
  Sender: FDA-Public Use
  Company Number: RU-JNJFOC-20180202652

PATIENT
  Age: 48 Year
  Sex: Male
  Weight: 49 kg

DRUGS (10)
  1. SPARFLOXACIN [Suspect]
     Active Substance: SPARFLOXACIN
     Indication: PULMONARY TUBERCULOSIS
     Route: 048
     Dates: start: 20170831
  2. CAPREOMYCIN [Suspect]
     Active Substance: CAPREOMYCIN
     Indication: PULMONARY TUBERCULOSIS
     Route: 030
     Dates: start: 20170831
  3. L-GLUTAMINIC ACID [Concomitant]
     Indication: DRUG EFFECT DECREASED
     Route: 048
     Dates: start: 20170831
  4. LINEZOLID. [Suspect]
     Active Substance: LINEZOLID
     Indication: PULMONARY TUBERCULOSIS
     Route: 048
     Dates: start: 20170831
  5. BEDAQUILINE [Suspect]
     Active Substance: BEDAQUILINE
     Indication: PULMONARY TUBERCULOSIS
     Route: 048
     Dates: start: 20170831, end: 20170905
  6. CYCLOSERINE. [Suspect]
     Active Substance: CYCLOSERINE
     Indication: PULMONARY TUBERCULOSIS
     Route: 048
     Dates: start: 20170831
  7. PARA-AMINOSALICYLIC ACID [Suspect]
     Active Substance: AMINOSALICYLIC ACID
     Indication: PULMONARY TUBERCULOSIS
     Route: 048
     Dates: start: 20170831
  8. PYRIDOXIN [Concomitant]
     Active Substance: PYRIDOXINE
     Indication: DRUG EFFECT DECREASED
     Route: 030
     Dates: start: 20170831
  9. CARSIL [Concomitant]
     Active Substance: DIETARY SUPPLEMENT\HERBALS\MILK THISTLE
     Indication: DRUG EFFECT DECREASED
     Route: 048
     Dates: start: 20170831
  10. THIAMINE. [Concomitant]
     Active Substance: THIAMINE
     Indication: DRUG EFFECT DECREASED
     Route: 030
     Dates: start: 20170831

REACTIONS (3)
  - Acute coronary syndrome [Not Recovered/Not Resolved]
  - Dyspnoea [Not Recovered/Not Resolved]
  - Electrocardiogram abnormal [Not Recovered/Not Resolved]

NARRATIVE: CASE EVENT DATE: 20170905
